FAERS Safety Report 18259705 (Version 3)
Quarter: 2020Q4

REPORT INFORMATION
  Report Type: Report from Study
  Country: None (occurrence: US)
  Receive Date: 20200912
  Receipt Date: 20201228
  Transmission Date: 20210113
  Serious: Yes (Other)
  Sender: FDA-Public Use
  Company Number: US-ABBVIE-20K-163-3559409-00

PATIENT
  Age: 61 Year
  Sex: Female

DRUGS (4)
  1. HUMIRA [Suspect]
     Active Substance: ADALIMUMAB
     Indication: PSORIATIC ARTHROPATHY
     Dosage: CITRATE FREE
     Route: 058
  2. REMICADE [Suspect]
     Active Substance: INFLIXIMAB
     Indication: PRODUCT USED FOR UNKNOWN INDICATION
     Route: 065
  3. HUMIRA [Suspect]
     Active Substance: ADALIMUMAB
     Route: 058
  4. HUMIRA [Suspect]
     Active Substance: ADALIMUMAB
     Route: 058

REACTIONS (14)
  - Glucose tolerance impaired [Recovering/Resolving]
  - Wrong technique in product usage process [Unknown]
  - Arthralgia [Not Recovered/Not Resolved]
  - Device issue [Recovered/Resolved]
  - Unevaluable event [Not Recovered/Not Resolved]
  - Vitamin D abnormal [Unknown]
  - Immunodeficiency [Recovering/Resolving]
  - Onychoclasis [Not Recovered/Not Resolved]
  - Back pain [Not Recovered/Not Resolved]
  - Impaired gastric emptying [Not Recovered/Not Resolved]
  - Autoimmune hepatitis [Recovering/Resolving]
  - Infusion related reaction [Recovering/Resolving]
  - Weight decreased [Recovering/Resolving]
  - Cutaneous lupus erythematosus [Recovering/Resolving]

NARRATIVE: CASE EVENT DATE: 2009
